FAERS Safety Report 23127363 (Version 1)
Quarter: 2023Q4

REPORT INFORMATION
  Report Type: Spontaneous
  Country: US (occurrence: US)
  Receive Date: 20231031
  Receipt Date: 20231031
  Transmission Date: 20240109
  Serious: No
  Sender: FDA-Public Use
  Company Number: US-AUROBINDO-AUR-APL-2023-038448

PATIENT
  Age: 33 Year
  Sex: Male
  Weight: 79.37 kg

DRUGS (1)
  1. METOPROLOL TARTRATE [Suspect]
     Active Substance: METOPROLOL TARTRATE
     Indication: Heart rate decreased
     Dosage: UNK, TWO TIMES A DAY ( ONCE IN THE MORNING ONCE IN THE EVENING)
     Route: 065
     Dates: start: 20220930

REACTIONS (4)
  - Drug ineffective [Unknown]
  - Product substitution issue [Unknown]
  - Extra dose administered [Unknown]
  - Product physical issue [Unknown]

NARRATIVE: CASE EVENT DATE: 20230401
